FAERS Safety Report 8796161 (Version 3)
Quarter: 2012Q4

REPORT INFORMATION
  Report Type: 
  Country: US (occurrence: US)
  Receive Date: 20120920
  Receipt Date: 20121108
  Transmission Date: 20130627
  Serious: Yes (Disabling)
  Sender: FDA-Public Use
  Company Number: US-PFIZER INC-2012231591

PATIENT
  Age: 43 Year
  Sex: Female
  Weight: 66 kg

DRUGS (4)
  1. LYRICA [Suspect]
     Indication: NERVE PAIN
     Dosage: 50 mg, daily
     Dates: start: 2007
  2. LYRICA [Suspect]
     Indication: MULTIPLE SCLEROSIS
  3. CELEBREX [Suspect]
     Indication: JOINT PAIN
     Dosage: 200 mg, daily
     Dates: start: 2007
  4. TOPAMAX [Suspect]
     Indication: MIGRAINE
     Dosage: 50 mg, daily
     Dates: start: 2006

REACTIONS (7)
  - Memory impairment [Recovering/Resolving]
  - Fatigue [Not Recovered/Not Resolved]
  - Arthralgia [Not Recovered/Not Resolved]
  - Therapeutic response unexpected [Unknown]
  - Headache [Unknown]
  - Confusional state [Unknown]
  - Feeling abnormal [Unknown]
